FAERS Safety Report 6055559-8 (Version None)
Quarter: 2009Q1

REPORT INFORMATION
  Report Type: 
  Country: None (occurrence: None)
  Receive Date: 20090128
  Receipt Date: 20090122
  Transmission Date: 20090719
  Serious: Yes (Hospitalization)
  Sender: FDA-Public Use
  Company Number: B0555802A

PATIENT
  Age: 58 Year
  Sex: Female

DRUGS (11)
  1. LAMICTAL [Suspect]
     Dosage: 25MG PER DAY
     Route: 048
     Dates: start: 20080814, end: 20080824
  2. LAMICTAL [Suspect]
     Dosage: 50MG PER DAY
     Route: 048
     Dates: start: 20080825, end: 20080901
  3. LAMICTAL [Suspect]
     Dosage: 75MG PER DAY
     Route: 048
     Dates: start: 20080902, end: 20080101
  4. LAMICTAL [Suspect]
     Dosage: 50MG PER DAY
     Route: 048
     Dates: start: 20081210, end: 20081214
  5. LAMICTAL [Suspect]
     Dosage: 25MG PER DAY
     Route: 048
     Dates: start: 20081215, end: 20081222
  6. PAROXETINE HCL [Concomitant]
     Dosage: 50MG PER DAY
     Route: 048
     Dates: start: 20080814, end: 20080101
  7. LUDIOMIL [Concomitant]
     Dosage: 150MG PER DAY
     Route: 048
     Dates: start: 20080101, end: 20080101
  8. TRUXAL [Concomitant]
     Dosage: 50MG PER DAY
     Route: 048
     Dates: start: 20080814
  9. LITHIUM CARBONATE [Concomitant]
     Dosage: 900MG PER DAY
     Route: 065
     Dates: start: 20080101
  10. CHLORPROMAZINE [Concomitant]
     Dosage: 200MG PER DAY
     Route: 048
     Dates: start: 20080101, end: 20080101
  11. NEULEPTIL [Concomitant]
     Dosage: 50MG PER DAY
     Route: 048
     Dates: start: 20080101, end: 20080101

REACTIONS (1)
  - BIPOLAR I DISORDER [None]
